FAERS Safety Report 26119423 (Version 1)
Quarter: 2025Q4

REPORT INFORMATION
  Report Type: Spontaneous
  Country: US (occurrence: US)
  Receive Date: 20251204
  Receipt Date: 20251204
  Transmission Date: 20260117
  Serious: Yes (Hospitalization, Other)
  Sender: Kenvue
  Company Number: US-KENVUE-20251110705

PATIENT
  Age: 60 Year
  Sex: Female

DRUGS (2)
  1. SALICYLIC ACID [Suspect]
     Active Substance: SALICYLIC ACID
     Indication: Delusion of parasitosis
  2. SALICYLIC ACID [Suspect]
     Active Substance: SALICYLIC ACID
     Indication: Trigeminal nerve disorder

REACTIONS (3)
  - Wound [Unknown]
  - Wound infection [Unknown]
  - Product use in unapproved indication [Unknown]
